FAERS Safety Report 8533416-2 (Version None)
Quarter: 2012Q3

REPORT INFORMATION
  Report Type: 
  Country: None (occurrence: None)
  Receive Date: 20120724
  Receipt Date: 20120718
  Transmission Date: 20120928
  Serious: Yes (Other)
  Sender: FDA-Public Use
  Company Number: PHHY2012BR062155

PATIENT
  Age: 72 Year
  Sex: Female

DRUGS (3)
  1. EXELON [Suspect]
     Indication: DEMENTIA ALZHEIMER'S TYPE
     Dosage: 9.5 MG (ONE PATCH 18MG/10CM2) DAILY
     Route: 062
  2. EXELON [Suspect]
     Dosage: 4.5 MG/24HS, QD
     Route: 062
  3. CITALOPRAM [Concomitant]
     Indication: DEPRESSION
     Dosage: 20 MG, DAILY

REACTIONS (7)
  - GAIT DISTURBANCE [None]
  - ABNORMAL BEHAVIOUR [None]
  - ANXIETY [None]
  - MOVEMENT DISORDER [None]
  - PARKINSONIAN GAIT [None]
  - INSOMNIA [None]
  - SENSATION OF HEAVINESS [None]
